FAERS Safety Report 5342616-4 (Version None)
Quarter: 2007Q2

REPORT INFORMATION
  Report Type: 
  Country: None (occurrence: None)
  Receive Date: 20070416
  Receipt Date: 20070305
  Transmission Date: 20071010
  Serious: No
  Sender: FDA-Public Use
  Company Number: 2007SP000775

PATIENT
  Age: 80 Year
  Sex: Female
  Weight: 69.8539 kg

DRUGS (5)
  1. LUNESTA [Suspect]
     Indication: INSOMNIA
     Dosage: 1 MG;1X;ORAL
     Route: 048
     Dates: start: 20070227, end: 20070227
  2. ATIVAN [Concomitant]
  3. AMARYL [Concomitant]
  4. VALSARTAN [Concomitant]
  5. DONNATAL [Concomitant]

REACTIONS (2)
  - HYPOAESTHESIA ORAL [None]
  - INSOMNIA [None]
